FAERS Safety Report 14842713 (Version 2)
Quarter: 2018Q2

REPORT INFORMATION
  Report Type: Spontaneous
  Country: US (occurrence: US)
  Receive Date: 20180503
  Receipt Date: 20180625
  Transmission Date: 20180711
  Serious: No
  Sender: FDA-Public Use
  Company Number: US-CELGENEUS-USA-20180409008

PATIENT
  Age: 63 Year
  Sex: Female
  Weight: 73 kg

DRUGS (1)
  1. OTEZLA [Suspect]
     Active Substance: APREMILAST
     Indication: PSORIATIC ARTHROPATHY
     Dosage: 60 MILLIGRAM
     Route: 048
     Dates: start: 20171102

REACTIONS (2)
  - Muscle spasms [Unknown]
  - Insomnia [Unknown]

NARRATIVE: CASE EVENT DATE: 201804
